FAERS Safety Report 14462142 (Version 1)
Quarter: 2018Q1

REPORT INFORMATION
  Report Type: Spontaneous
  Country: JP (occurrence: JP)
  Receive Date: 20180130
  Receipt Date: 20180130
  Transmission Date: 20180509
  Serious: Yes (Other)
  Sender: FDA-Public Use
  Company Number: JP-PFIZER INC-2018032979

PATIENT
  Age: 71 Year
  Sex: Female

DRUGS (3)
  1. CARDENALIN [Suspect]
     Active Substance: DOXAZOSIN MESYLATE
     Indication: HYPERTENSION
     Dosage: 0.5 (UNIT UNKNOWN), 1X/DAY (BEFORE BEDTIME)
     Route: 048
  2. IRBETAN [Concomitant]
     Active Substance: IRBESARTAN
     Indication: HYPERTENSION
     Dosage: 0.5 (UNIT UNKNOWN), 1X/DAY (BEFORE BEDTIME)
     Route: 048
  3. KEFRAL [Suspect]
     Active Substance: CEFACLOR

REACTIONS (6)
  - Cystitis [Recovered/Resolved]
  - Urine output increased [Unknown]
  - Paraesthesia [Recovered/Resolved]
  - Nocturia [Unknown]
  - Anaphylactic shock [Unknown]
  - Dyspnoea [Unknown]
